FAERS Safety Report 18117916 (Version 1)
Quarter: 2020Q3

REPORT INFORMATION
  Report Type: Spontaneous
  Country: US (occurrence: US)
  Receive Date: 20200805
  Receipt Date: 20200805
  Transmission Date: 20201103
  Serious: Yes (Death)
  Sender: FDA-Public Use
  Company Number: None

PATIENT
  Age: 83 Year
  Sex: Female
  Weight: 83.8 kg

DRUGS (1)
  1. REMDESIVIR. [Suspect]
     Active Substance: REMDESIVIR
     Indication: COVID-19
     Dosage: ?          OTHER FREQUENCY:ONCE;?
     Route: 040
     Dates: start: 20200727, end: 20200727

REACTIONS (5)
  - Agitation [None]
  - General physical health deterioration [None]
  - Mental status changes [None]
  - Respiratory failure [None]
  - Acute respiratory failure [None]

NARRATIVE: CASE EVENT DATE: 20200729
